FAERS Safety Report 6370640-1 (Version None)
Quarter: 2009Q3

REPORT INFORMATION
  Report Type: 
  Country: None (occurrence: None)
  Receive Date: 20090921
  Receipt Date: 20090921
  Transmission Date: 20100115
  Serious: Yes (Hospitalization)
  Sender: FDA-Public Use
  Company Number: None

PATIENT
  Sex: Female
  Weight: 88 kg

DRUGS (2)
  1. CISPLATIN [Suspect]
     Dosage: 137 MG
  2. TAXOL [Suspect]
     Dosage: 247 MG

REACTIONS (3)
  - CONSTIPATION [None]
  - NAUSEA [None]
  - VOMITING [None]
